FAERS Safety Report 5023460-4 (Version None)
Quarter: 2006Q2

REPORT INFORMATION
  Report Type: 
  Country: None (occurrence: None)
  Receive Date: 20060612
  Receipt Date: 20060524
  Transmission Date: 20061013
  Serious: Yes (Other)
  Sender: FDA-Public Use
  Company Number: 2006AP02389

PATIENT
  Age: 12291 Day
  Sex: Female

DRUGS (2)
  1. XYLOCAINE [Suspect]
     Indication: LOCAL ANAESTHESIA
     Dosage: 1.500 ML
     Route: 058
     Dates: start: 20060523, end: 20060523
  2. ISODINE [Concomitant]
     Indication: INFECTION PROPHYLAXIS
     Route: 061
     Dates: start: 20060523, end: 20060523

REACTIONS (2)
  - LOSS OF CONSCIOUSNESS [None]
  - MYOCLONUS [None]
